FAERS Safety Report 14609566 (Version 1)
Quarter: 2018Q1

REPORT INFORMATION
  Report Type: Spontaneous
  Country: GB (occurrence: GB)
  Receive Date: 20180307
  Receipt Date: 20180307
  Transmission Date: 20180509
  Serious: Yes (Other)
  Sender: FDA-Public Use
  Company Number: GB-ASTRAZENECA-2018SE25906

PATIENT
  Age: 51 Year
  Sex: Female
  Weight: 76.7 kg

DRUGS (4)
  1. SYMBICORT [Concomitant]
     Active Substance: BUDESONIDE\FORMOTEROL FUMARATE DIHYDRATE
  2. OMEPRAZOLE. [Suspect]
     Active Substance: OMEPRAZOLE
     Indication: GASTROOESOPHAGEAL REFLUX DISEASE
     Dosage: TO SUMMER 2017
     Route: 048
     Dates: start: 20170801, end: 20171101
  3. OMEPRAZOLE. [Suspect]
     Active Substance: OMEPRAZOLE
     Indication: GASTROOESOPHAGEAL REFLUX DISEASE
     Dosage: TO SUMMER 2017
     Route: 048
     Dates: start: 20031001, end: 20170101
  4. CARBOCISTEINE [Concomitant]
     Active Substance: CARBOCYSTEINE

REACTIONS (8)
  - Abnormal weight gain [Recovering/Resolving]
  - Decreased appetite [Unknown]
  - Weight loss poor [Recovered/Resolved]
  - Dyspepsia [Unknown]
  - Abdominal distension [Recovering/Resolving]
  - Drug monitoring procedure not performed [Unknown]
  - Abdominal pain upper [Recovering/Resolving]
  - Hepatic function abnormal [Recovering/Resolving]

NARRATIVE: CASE EVENT DATE: 20140101
